FAERS Safety Report 7911921-7 (Version None)
Quarter: 2011Q4

REPORT INFORMATION
  Report Type: 
  Country: None (occurrence: None)
  Receive Date: 20111114
  Receipt Date: 20111017
  Transmission Date: 20120403
  Serious: Yes (Life-Threatening, Hospitalization)
  Sender: FDA-Public Use
  Company Number: DE-ROCHE-793126

PATIENT
  Sex: Male
  Weight: 71.3 kg

DRUGS (2)
  1. XELODA [Suspect]
     Indication: RECTAL CANCER
     Dosage: FREQUENCY: BID D1-33 W/O WEEKENDS + OPTIONAL BOOST ACTUAL DOSE: 1500 MG
     Route: 048
     Dates: start: 20110511, end: 20110617
  2. OXALIPLATIN [Suspect]
     Indication: RECTAL CANCER
     Dosage: LAST DOSE PRIOR TO SAE: 08 JUNE 2011, FREQUENCY: ON D1,8,15,22 AND 29. ACTUAL DOSE: 105 MG
     Route: 042
     Dates: start: 20110511, end: 20110617

REACTIONS (7)
  - INTESTINAL HAEMORRHAGE [None]
  - HAEMOGLOBIN DECREASED [None]
  - ILEUS [None]
  - PLATELET COUNT INCREASED [None]
  - SUTURE RELATED COMPLICATION [None]
  - WOUND INFECTION [None]
  - INFECTIOUS PERITONITIS [None]
